FAERS Safety Report 7741957-0 (Version None)
Quarter: 2011Q3

REPORT INFORMATION
  Report Type: 
  Country: None (occurrence: None)
  Receive Date: 20110912
  Receipt Date: 20110901
  Transmission Date: 20111222
  Serious: Yes (Hospitalization, Other)
  Sender: FDA-Public Use
  Company Number: FR-JNJFOC-20110902209

PATIENT
  Sex: Female

DRUGS (10)
  1. NAFTIDROFURYL [Concomitant]
     Indication: PRODUCT USED FOR UNKNOWN INDICATION
     Route: 048
  2. ACETAMINOPHEN [Concomitant]
     Indication: PAIN
     Route: 048
  3. ESOMEPRAZOLE SODIUM [Concomitant]
     Indication: PRODUCT USED FOR UNKNOWN INDICATION
     Route: 048
  4. LEXOMIL [Concomitant]
     Indication: ANXIETY
     Route: 048
  5. CORDARONE [Concomitant]
     Indication: ATRIAL FIBRILLATION
     Route: 048
  6. FUROSEMIDE [Concomitant]
     Indication: OEDEMA DUE TO CARDIAC DISEASE
     Route: 048
  7. BRONCHODUAL [Concomitant]
     Indication: CHRONIC OBSTRUCTIVE PULMONARY DISEASE
     Route: 002
  8. BISOPROLOL FUMARATE [Concomitant]
     Indication: CARDIAC FAILURE
     Route: 048
  9. DURAGESIC-100 [Suspect]
     Indication: BACK PAIN
     Route: 062
  10. FERROUS SULFATE TAB [Concomitant]
     Indication: ANAEMIA
     Route: 048

REACTIONS (2)
  - DYSPNOEA [None]
  - CHRONIC RESPIRATORY FAILURE [None]
